FAERS Safety Report 4354095-4 (Version None)
Quarter: 2004Q2

REPORT INFORMATION
  Report Type: 
  Country: None (occurrence: None)
  Receive Date: 20040505
  Receipt Date: 20040505
  Transmission Date: 20050107
  Serious: Yes (Other)
  Sender: FDA-Public Use
  Company Number: None

PATIENT
  Age: 79 Year
  Sex: Male

DRUGS (8)
  1. DEMEROL [Suspect]
     Indication: ARTHRALGIA
     Dosage: INJECTION
     Dates: start: 20030919
  2. VISTARIL [Suspect]
     Indication: ARTHRALGIA
     Dosage: IM
     Route: 030
     Dates: start: 20030919
  3. HUMULIN [Concomitant]
  4. GLUCOPHAGE [Concomitant]
  5. VIOXX [Concomitant]
  6. LIPITOR [Concomitant]
  7. DIOVAN [Concomitant]
  8. AVANDIA [Concomitant]

REACTIONS (2)
  - DERMATITIS BULLOUS [None]
  - SKIN NECROSIS [None]
